FAERS Safety Report 5588939-5 (Version None)
Quarter: 2007Q4

REPORT INFORMATION
  Report Type: 
  Country: None (occurrence: None)
  Receive Date: 20071211
  Receipt Date: 20071022
  Transmission Date: 20080405
  Serious: No
  Sender: FDA-Public Use
  Company Number: 002#2#2007-00260

PATIENT
  Age: 53 Year
  Sex: Female
  Weight: 48.5349 kg

DRUGS (14)
  1. NEUPRO [Suspect]
     Indication: MULTIPLE SYSTEM ATROPHY
     Dosage: 2MG/24H,1 IN 1 D,TRANSDERMAL
     Route: 062
     Dates: start: 20070927, end: 20071003
  2. NEUPRO [Suspect]
     Indication: PARKINSON'S DISEASE
     Dosage: 2MG/24H,1 IN 1 D,TRANSDERMAL
     Route: 062
     Dates: start: 20070927, end: 20071003
  3. BACLOFEN INFUSION PUMP [Concomitant]
  4. KLONOPIN [Concomitant]
  5. ATENOLOL [Concomitant]
  6. POLYETHYLENE GLYCOL [Concomitant]
  7. COLACE [Concomitant]
  8. PROVIGIL [Concomitant]
  9. SINEMET [Concomitant]
  10. FOSAMAX [Concomitant]
  11. ALBUTEROL [Concomitant]
  12. BENEFIBER [Concomitant]
  13. CALCIUM WITH VITAMIN D AND MAGNESIUM [Concomitant]
  14. PREVACID [Concomitant]

REACTIONS (8)
  - APPLICATION SITE ERYTHEMA [None]
  - BURNING SENSATION [None]
  - DIZZINESS [None]
  - HEADACHE [None]
  - HYPERSENSITIVITY [None]
  - PARAESTHESIA [None]
  - PRURITUS [None]
  - SOMNOLENCE [None]
